FAERS Safety Report 6292410-5 (Version None)
Quarter: 2009Q3

REPORT INFORMATION
  Report Type: 
  Country: None (occurrence: None)
  Receive Date: 20090731
  Receipt Date: 20090727
  Transmission Date: 20100115
  Serious: Yes (Death, Hospitalization)
  Sender: FDA-Public Use
  Company Number: PHHO2009US09381

PATIENT
  Sex: Male

DRUGS (11)
  1. NILOTINIB [Suspect]
     Indication: CHRONIC MYELOID LEUKAEMIA
     Dosage: UNK
     Dates: start: 20090601
  2. DASATINIB [Concomitant]
     Indication: CHRONIC MYELOID LEUKAEMIA
     Dosage: UNK
     Dates: start: 20090625
  3. ALLOPURINOL [Concomitant]
     Dosage: UNK
     Dates: start: 20090107
  4. MEROPENEM [Concomitant]
  5. CANDESARTAN CILEXETIL [Concomitant]
  6. ITRACONAZOLE [Concomitant]
  7. LANSOPRAZOLE [Concomitant]
  8. LACTOMIN [Concomitant]
  9. MOSAPRIDE CITRATE [Concomitant]
  10. CEFEPIME HYDROCHLORIDE [Concomitant]
  11. DIURETICS [Concomitant]

REACTIONS (3)
  - BLAST CELL COUNT INCREASED [None]
  - CHRONIC MYELOID LEUKAEMIA [None]
  - PYREXIA [None]
